FAERS Safety Report 15128971 (Version 1)
Quarter: 2018Q3

REPORT INFORMATION
  Report Type: Spontaneous
  Country: IT (occurrence: IT)
  Receive Date: 20180711
  Receipt Date: 20180711
  Transmission Date: 20181010
  Serious: Yes (Hospitalization, Other)
  Sender: FDA-Public Use
  Company Number: IT-BRISTOL-MYERS SQUIBB COMPANY-BMS-2018-061019

PATIENT
  Age: 81 Year
  Sex: Female

DRUGS (1)
  1. WARFARIN SODIUM. [Suspect]
     Active Substance: WARFARIN SODIUM
     Indication: ATRIAL FIBRILLATION
     Dosage: 5 MG/DAY
     Route: 065
     Dates: start: 20041013

REACTIONS (2)
  - Intestinal haemorrhage [Recovered/Resolved]
  - Polyp [Recovered/Resolved]

NARRATIVE: CASE EVENT DATE: 20180113
